FAERS Safety Report 7792758-9 (Version None)
Quarter: 2011Q4

REPORT INFORMATION
  Report Type: 
  Country: None (occurrence: None)
  Receive Date: 20111003
  Receipt Date: 20110923
  Transmission Date: 20120403
  Serious: Yes (Other)
  Sender: FDA-Public Use
  Company Number: US-MYLANLABS-2011S1020007

PATIENT
  Age: 71 Year
  Sex: Female

DRUGS (16)
  1. LEVOTHYROXINE [Concomitant]
  2. ZOLOFT [Concomitant]
  3. PREDNISONE [Concomitant]
  4. ASPIRIN [Concomitant]
  5. ADVAIR DISKUS 100/50 [Concomitant]
  6. ALBUTEROL SULFATE AND IPRATROPIUM BROMIDE [Concomitant]
  7. XALATAN [Concomitant]
  8. ISOSORBIDE DINITRATE [Concomitant]
  9. ALPRAZOLAM [Concomitant]
  10. PANTOPRAZOLE [Concomitant]
  11. NITROFURANTOIN MONOHYDRATE/MACROCRYSTALS [Suspect]
     Indication: URINARY TRACT INFECTION
     Route: 048
     Dates: start: 20110902, end: 20110903
  12. OXYGEN [Concomitant]
  13. PLAVIX [Concomitant]
  14. NITROSTAT [Concomitant]
  15. LIVALO [Concomitant]
  16. RESTASIS [Concomitant]

REACTIONS (5)
  - ANAPHYLACTIC SHOCK [None]
  - DYSPNOEA [None]
  - PYREXIA [None]
  - DYSURIA [None]
  - HEPATIC PAIN [None]
